FAERS Safety Report 22397266 (Version 1)
Quarter: 2023Q2

REPORT INFORMATION
  Report Type: Spontaneous
  Country: SE (occurrence: SE)
  Receive Date: 20230602
  Receipt Date: 20230602
  Transmission Date: 20230722
  Serious: Yes (Hospitalization)
  Sender: FDA-Public Use
  Company Number: None

PATIENT
  Age: 85 Year
  Sex: Male

DRUGS (10)
  1. PREDNISOLONE [Suspect]
     Active Substance: PREDNISOLONE
     Indication: Gout
     Route: 065
  2. Folacin [Concomitant]
     Indication: Product used for unknown indication
     Dosage: FOR ACTIVE INGREDIENT FOLIC ACID, ANHYDROUS THE STRENGTH IS 1 MILLIGRAM.
  3. OXYCODONE HYDROCHLORIDE [Concomitant]
     Active Substance: OXYCODONE HYDROCHLORIDE
     Indication: Product used for unknown indication
     Dosage: 1 PC , FOR ACTIVE INGREDIENT OXYCODONE HYDROCHLORIDE THE STRENGTH IS 5 MILLIGRAMS. , FOR ACTIVE INGR
  4. LEVOTHYROXINE SODIUM [Concomitant]
     Active Substance: LEVOTHYROXINE SODIUM
     Indication: Product used for unknown indication
     Dosage: FOR ACTIVE INGREDIENT LEVOTHYROXINE THE STRENGTH IS 50 MICROGRAM. , FOR ACTIVE INGREDIENT LEVOTHYROX
  5. SYMBICORT [Concomitant]
     Active Substance: BUDESONIDE\FORMOTEROL FUMARATE DIHYDRATE
     Indication: Product used for unknown indication
  6. ALFUZOSIN [Concomitant]
     Active Substance: ALFUZOSIN
     Indication: Product used for unknown indication
     Dosage: FOR ACTIVE INGREDIENT ALFUZOSIN HYDROCHLORIDE THE STRENGTH IS 10 MILLIGRAMS. FOR ACTIVE INGREDIENT A
  7. AMLODIPINE BESYLATE [Concomitant]
     Active Substance: AMLODIPINE BESYLATE
     Indication: Product used for unknown indication
  8. SIMVASTATIN [Concomitant]
     Active Substance: SIMVASTATIN
     Indication: Product used for unknown indication
  9. XARELTO [Concomitant]
     Active Substance: RIVAROXABAN
     Indication: Product used for unknown indication
  10. GABAPENTIN [Concomitant]
     Active Substance: GABAPENTIN
     Indication: Product used for unknown indication

REACTIONS (2)
  - Fluid retention [Recovering/Resolving]
  - Cardiac failure [Recovering/Resolving]

NARRATIVE: CASE EVENT DATE: 20201112
